FAERS Safety Report 10041043 (Version 1)
Quarter: 2014Q1

REPORT INFORMATION
  Report Type: Spontaneous
  Country: US (occurrence: None)
  Receive Date: 20140326
  Receipt Date: 20140326
  Transmission Date: 20141002
  Serious: Yes (Other)
  Sender: FDA-Public Use
  Company Number: None

PATIENT
  Age: 54 Year
  Sex: Female

DRUGS (2)
  1. VITAMIN SUPPLEMENT [Suspect]
     Route: 048
     Dates: start: 20131112, end: 20131119
  2. UNSPECIFIED [Concomitant]

REACTIONS (7)
  - Local swelling [None]
  - Local swelling [None]
  - Erythema [None]
  - Rash [None]
  - Drug hypersensitivity [None]
  - Thrombosis [None]
  - Pain of skin [None]
